FAERS Safety Report 17985388 (Version 2)
Quarter: 2020Q3

REPORT INFORMATION
  Report Type: Report from Study
  Country: None (occurrence: US)
  Receive Date: 20200706
  Receipt Date: 20200709
  Transmission Date: 20201103
  Serious: Yes (Other)
  Sender: FDA-Public Use
  Company Number: US-ABBVIE-20K-163-3458659-00

PATIENT
  Sex: Female

DRUGS (3)
  1. XELJANZ [Suspect]
     Active Substance: TOFACITINIB CITRATE
     Route: 048
     Dates: start: 202006
  2. XELJANZ [Suspect]
     Active Substance: TOFACITINIB CITRATE
     Indication: RHEUMATOID ARTHRITIS
     Route: 048
     Dates: start: 20200618, end: 20200619
  3. HUMIRA [Suspect]
     Active Substance: ADALIMUMAB
     Indication: PRODUCT USED FOR UNKNOWN INDICATION
     Route: 058

REACTIONS (8)
  - Neoplasm malignant [Unknown]
  - Dyspnoea [Unknown]
  - Joint swelling [Recovering/Resolving]
  - Swelling [Unknown]
  - Lip swelling [Unknown]
  - Hypersensitivity [Unknown]
  - Mobility decreased [Recovering/Resolving]
  - Paraesthesia oral [Unknown]

NARRATIVE: CASE EVENT DATE: 2014
